FAERS Safety Report 6201677-0 (Version None)
Quarter: 2009Q2

REPORT INFORMATION
  Report Type: 
  Country: None (occurrence: None)
  Receive Date: 20090526
  Receipt Date: 20090519
  Transmission Date: 20091009
  Serious: Yes (Hospitalization)
  Sender: FDA-Public Use
  Company Number: BR-BAYER-200819878LA

PATIENT
  Age: 35 Year
  Sex: Female

DRUGS (2)
  1. YASMIN [Suspect]
     Indication: ACNE
     Route: 048
     Dates: start: 20040101
  2. ALDACTONE [Concomitant]
     Indication: ACNE
     Route: 065

REACTIONS (2)
  - GASTROOESOPHAGEAL REFLUX DISEASE [None]
  - NO ADVERSE EVENT [None]
